FAERS Safety Report 5709526-1 (Version None)
Quarter: 2008Q2

REPORT INFORMATION
  Report Type: 
  Country: None (occurrence: None)
  Receive Date: 20080418
  Receipt Date: 20080411
  Transmission Date: 20081010
  Serious: Yes (Death, Hospitalization, Other)
  Sender: FDA-Public Use
  Company Number: US-NOVOPROD-264819

PATIENT
  Sex: Male
  Weight: 111.18 kg

DRUGS (3)
  1. NOVOSEVEN [Suspect]
     Indication: GUN SHOT WOUND
     Dosage: 9.6 MG, UNK
     Route: 042
     Dates: start: 20060831, end: 20060831
  2. NOVOSEVEN [Suspect]
     Indication: SHOCK HAEMORRHAGIC
     Dosage: 43.2 MG, 2 HOUR-INTERVALS
     Dates: start: 20060901, end: 20060901
  3. NOVOSEVEN [Suspect]
     Indication: COAGULOPATHY
     Dosage: 28.6 MG, UNK
     Route: 042
     Dates: start: 20060902, end: 20060903

REACTIONS (1)
  - HAEMORRHAGE [None]
